FAERS Safety Report 6697399-2 (Version None)
Quarter: 2010Q2

REPORT INFORMATION
  Report Type: 
  Country: None (occurrence: None)
  Receive Date: 20100426
  Receipt Date: 20100421
  Transmission Date: 20101027
  Serious: Yes (Disabling)
  Sender: FDA-Public Use
  Company Number: GB-ASTRAZENECA-2010SE17603

PATIENT
  Age: 72 Year
  Sex: Male
  Weight: 82.5 kg

DRUGS (5)
  1. ATENOLOL [Suspect]
     Indication: HYPERTENSION
     Route: 048
     Dates: start: 20090301, end: 20090301
  2. ATENOLOL [Suspect]
     Indication: HEART RATE IRREGULAR
     Route: 048
     Dates: start: 20090301, end: 20090301
  3. AMLODIPINE [Concomitant]
     Indication: HYPERTENSION
     Route: 048
  4. BENDROFLUMETHIAZIDE [Concomitant]
     Indication: HYPERTENSION
     Route: 048
  5. IRBESARTAN [Concomitant]
     Indication: HYPERTENSION
     Route: 048

REACTIONS (3)
  - LOCAL SWELLING [None]
  - RASH [None]
  - SWELLING FACE [None]
